FAERS Safety Report 4999125-1 (Version None)
Quarter: 2006Q1

REPORT INFORMATION
  Report Type: 
  Country: None (occurrence: None)
  Receive Date: 20060315
  Receipt Date: 20060103
  Transmission Date: 20060701
  Serious: Yes (Other)
  Sender: FDA-Public Use
  Company Number: 420012

PATIENT
  Age: 59 Year
  Sex: Female
  Weight: 48.5 kg

DRUGS (7)
  1. BONIVA [Suspect]
     Indication: OSTEOPOROSIS
     Dosage: 150 MG 1 PER MONTH ORAL
     Route: 048
     Dates: start: 20050915
  2. TORSEMIDE [Concomitant]
  3. METOPROLOL SUCCINATE [Concomitant]
  4. SYNTHROID [Concomitant]
  5. COUMADIN [Concomitant]
  6. TICLOPIDINE (TICLOPIDINE HYDROCHLORIDE) [Concomitant]
  7. POTASSIUM CHLORIDE [Concomitant]

REACTIONS (4)
  - BREAST PAIN [None]
  - FLUID RETENTION [None]
  - GASTROINTESTINAL PAIN [None]
  - TREMOR [None]
